FAERS Safety Report 6882649-X (Version None)
Quarter: 2010Q3

REPORT INFORMATION
  Report Type: 
  Country: None (occurrence: None)
  Receive Date: 20100729
  Receipt Date: 20100721
  Transmission Date: 20110219
  Serious: Yes (Hospitalization)
  Sender: FDA-Public Use
  Company Number: US-ROCHE-712874

PATIENT
  Sex: Male
  Weight: 69.9 kg

DRUGS (4)
  1. BEVACIZUMAB [Suspect]
     Indication: GLIOBLASTOMA MULTIFORME
     Dosage: FREQUENCY:Q2W, DOSE: 10 MG/M2.  INFUSION DURATION: 30 MINUTES. LAST DOSE PRIOR TO SAE: 17 JUNE 2010
     Route: 042
     Dates: start: 20100414
  2. TEMOZOLOMIDE [Suspect]
     Indication: GLIOBLASTOMA MULTIFORME
     Dosage: FREQUENCY: DAY 1 AND 5 OF 28 DAYS CYCLE.  LAST DOSE PRIOR TO SAE; 17 JUNE 2010 (CYCLE: 2).
     Route: 065
     Dates: start: 20100617
  3. VITAMINE D [Concomitant]
  4. KEPPRA [Concomitant]
     Dates: end: 20100422

REACTIONS (2)
  - BRAIN OEDEMA [None]
  - CONVULSION [None]
